FAERS Safety Report 22230112 (Version 5)
Quarter: 2023Q4

REPORT INFORMATION
  Report Type: Spontaneous
  Country: CA (occurrence: CA)
  Receive Date: 20230419
  Receipt Date: 20231026
  Transmission Date: 20240109
  Serious: Yes (Other)
  Sender: FDA-Public Use
  Company Number: CA-PFIZER INC-202201387412

PATIENT
  Age: 58 Year
  Sex: Female

DRUGS (2)
  1. ABRILADA [Suspect]
     Active Substance: ADALIMUMAB-AFZB
     Indication: Hidradenitis
     Dosage: 1 DF, WEEK 0 160MG, WEEK 2 80MG THEN 40MG EVERY WEEK STARTING WEEK 4
     Route: 058
     Dates: start: 20221205
  2. ABRILADA [Suspect]
     Active Substance: ADALIMUMAB-AFZB
     Dosage: 80 MG EVERY WEEK, PREFILLED PEN - NOT STARTED YET

REACTIONS (6)
  - Abscess rupture [Not Recovered/Not Resolved]
  - Abscess [Not Recovered/Not Resolved]
  - Therapeutic product effect decreased [Unknown]
  - Feeling of body temperature change [Recovered/Resolved]
  - Restlessness [Recovered/Resolved]
  - Inappropriate schedule of product administration [Unknown]

NARRATIVE: CASE EVENT DATE: 20221205
